FAERS Safety Report 9050646 (Version 1)
Quarter: 2013Q1

REPORT INFORMATION
  Report Type: Spontaneous
  Country: US (occurrence: US)
  Receive Date: 20130205
  Receipt Date: 20130205
  Transmission Date: 20140127
  Serious: Yes (Other)
  Sender: FDA-Public Use
  Company Number: US-PFIZER INC-2013043237

PATIENT
  Age: 64 Year
  Sex: Female
  Weight: 109 kg

DRUGS (4)
  1. NEURONTIN [Suspect]
     Indication: SCIATICA
     Dosage: 300 MG, UNK
     Dates: start: 20080326, end: 20080327
  2. ALPRAZOLAM [Concomitant]
     Dosage: 0.5 MG, UNK
  3. TIZANIDINE [Concomitant]
     Dosage: 2 MG, 1X/DAY
  4. AMBIEN [Concomitant]
     Dosage: UNK

REACTIONS (12)
  - Gun shot wound [Unknown]
  - Nervous system disorder [Unknown]
  - Dystonia [Unknown]
  - Tremor [Unknown]
  - Dyskinesia [Unknown]
  - Movement disorder [Unknown]
  - Crying [Unknown]
  - Fatigue [Unknown]
  - Weight increased [Unknown]
  - Body height decreased [Unknown]
  - Cough [Unknown]
  - Local swelling [Unknown]
